FAERS Safety Report 11648206 (Version 1)
Quarter: 2015Q4

REPORT INFORMATION
  Report Type: Spontaneous
  Country: FR (occurrence: FR)
  Receive Date: 20151021
  Receipt Date: 20151021
  Transmission Date: 20160304
  Serious: Yes (Death, Hospitalization)
  Sender: FDA-Public Use
  Company Number: FR-SA-2015SA161040

PATIENT
  Age: 50 Year
  Sex: Female

DRUGS (13)
  1. EVOLTRA [Suspect]
     Active Substance: CLOFARABINE
     Indication: ACUTE MYELOID LEUKAEMIA
     Route: 042
     Dates: start: 20150710, end: 20150715
  2. ZOVIRAX [Suspect]
     Active Substance: ACYCLOVIR
     Indication: PROPHYLAXIS
     Route: 042
     Dates: start: 20150710, end: 20150716
  3. CANCIDAS [Concomitant]
     Active Substance: CASPOFUNGIN ACETATE
     Dates: start: 20150714
  4. ZOPHREN [Suspect]
     Active Substance: ONDANSETRON
     Route: 042
     Dates: start: 20150710
  5. LEXOMIL [Concomitant]
     Active Substance: BROMAZEPAM
     Dosage: LONG-TERM TREATMENT
  6. HYDREA [Concomitant]
     Active Substance: HYDROXYUREA
     Indication: ACUTE MYELOID LEUKAEMIA
     Dates: start: 20150704
  7. VANCOMYCINE SANDOZ [Suspect]
     Active Substance: VANCOMYCIN
     Indication: PROPHYLAXIS
     Route: 042
     Dates: start: 20150710
  8. ARACYTINE [Suspect]
     Active Substance: CYTARABINE
     Indication: ACUTE MYELOID LEUKAEMIA
     Route: 042
     Dates: start: 20150710, end: 20150715
  9. IMOVANE [Concomitant]
     Active Substance: ZOPICLONE
     Dosage: LONG-TERM TREATMENT
  10. TIENAM [Suspect]
     Active Substance: CILASTATIN SODIUM\IMIPENEM
     Route: 042
     Dates: start: 20150706
  11. TIORFAN [Suspect]
     Active Substance: RACECADOTRIL
     Route: 042
     Dates: start: 20150710
  12. PROZAC [Concomitant]
     Active Substance: FLUOXETINE HYDROCHLORIDE
     Dosage: LONG-TERM TREATMENT
  13. FLAGYL [Concomitant]
     Active Substance: METRONIDAZOLE\METRONIDAZOLE HYDROCHLORIDE
     Dates: start: 20150716

REACTIONS (2)
  - Drug reaction with eosinophilia and systemic symptoms [Unknown]
  - Off label use [Unknown]

NARRATIVE: CASE EVENT DATE: 20150710
